FAERS Safety Report 7049296-0 (Version None)
Quarter: 2010Q4

REPORT INFORMATION
  Report Type: 
  Country: None (occurrence: None)
  Receive Date: 20101018
  Receipt Date: 20101014
  Transmission Date: 20110411
  Serious: Yes (Other)
  Sender: FDA-Public Use
  Company Number: IE-ROCHE-728724

PATIENT
  Sex: Female
  Weight: 80 kg

DRUGS (6)
  1. HERCEPTIN [Suspect]
     Indication: BREAST CANCER
     Route: 042
     Dates: start: 20100326
  2. ESCITALOPRAM [Concomitant]
     Indication: BIPOLAR DISORDER
  3. LANSOPRAZOLE [Concomitant]
  4. ANXICALM [Concomitant]
     Indication: BIPOLAR DISORDER
  5. BIPERIDEN HYDROCHLORIDE TAB [Concomitant]
  6. ZUCLOPENTHIXOL [Concomitant]

REACTIONS (2)
  - RENAL FAILURE [None]
  - RENAL IMPAIRMENT [None]
